FAERS Safety Report 12314895 (Version 22)
Quarter: 2019Q3

REPORT INFORMATION
  Report Type: Report from Study
  Country: CR (occurrence: CR)
  Receive Date: 20160428
  Receipt Date: 20190830
  Transmission Date: 20191004
  Serious: Yes (Hospitalization, Other)
  Sender: FDA-Public Use
  Company Number: PHHY2016CR055682

PATIENT
  Age: 66 Year
  Sex: Female
  Weight: 69 kg

DRUGS (9)
  1. AMITRIPTYLINE [Concomitant]
     Active Substance: AMITRIPTYLINE
     Indication: PRODUCT USED FOR UNKNOWN INDICATION
     Dosage: 2 DF, QHS
     Route: 048
  2. SANDOSTATIN LAR DEPOT [Suspect]
     Active Substance: OCTREOTIDE ACETATE
     Indication: NEUROENDOCRINE TUMOUR
     Dosage: 20 MG, QMO
     Route: 065
  3. SANDOSTATIN LAR DEPOT [Suspect]
     Active Substance: OCTREOTIDE ACETATE
     Indication: LIVER DISORDER
     Dosage: UNK
     Route: 065
     Dates: start: 20170531
  4. HYDROCHLOROTHIAZIDE. [Concomitant]
     Active Substance: HYDROCHLOROTHIAZIDE
     Indication: PRODUCT USED FOR UNKNOWN INDICATION
     Dosage: 1 DF, QD
     Route: 048
  5. SANDOSTATIN LAR DEPOT [Suspect]
     Active Substance: OCTREOTIDE ACETATE
     Dosage: UNK
     Route: 065
     Dates: start: 20180625
  6. SANDOSTATIN LAR DEPOT [Suspect]
     Active Substance: OCTREOTIDE ACETATE
     Dosage: UNK
     Route: 065
     Dates: start: 20170607
  7. SANDOSTATIN LAR DEPOT [Suspect]
     Active Substance: OCTREOTIDE ACETATE
     Dosage: 20 MG, UNK
     Route: 065
  8. AMLODIPINE [Concomitant]
     Active Substance: AMLODIPINE BESYLATE
     Indication: PRODUCT USED FOR UNKNOWN INDICATION
     Dosage: 1 DF, QD
     Route: 048
  9. ATENOLOL. [Concomitant]
     Active Substance: ATENOLOL
     Indication: PRODUCT USED FOR UNKNOWN INDICATION
     Dosage: 50 MG, BID
     Route: 048

REACTIONS (51)
  - Diabetes mellitus [Unknown]
  - Gastritis [Unknown]
  - Headache [Recovered/Resolved]
  - Blood cholesterol increased [Unknown]
  - Fatigue [Unknown]
  - Asthenia [Unknown]
  - Abdominal pain upper [Recovering/Resolving]
  - Patient-device incompatibility [Recovering/Resolving]
  - Malaise [Unknown]
  - Hiatus hernia [Unknown]
  - Pyrexia [Recovering/Resolving]
  - Colitis [Recovering/Resolving]
  - Pancreatic disorder [Unknown]
  - Chest injury [Unknown]
  - Diarrhoea [Recovered/Resolved]
  - Cystitis [Unknown]
  - Rhinitis [Recovered/Resolved]
  - Skin ulcer [Unknown]
  - Vertigo [Recovering/Resolving]
  - Vomiting [Recovering/Resolving]
  - Vomiting [Recovered/Resolved]
  - Abdominal discomfort [Unknown]
  - Lactose intolerance [Unknown]
  - Feeding disorder [Unknown]
  - Gastrointestinal motility disorder [Unknown]
  - Head injury [Unknown]
  - Hypersensitivity [Unknown]
  - Necrosis [Unknown]
  - Wound [Not Recovered/Not Resolved]
  - Neoplasm [Recovered/Resolved]
  - Pain [Unknown]
  - Hernia pain [Recovered/Resolved]
  - Hyperkeratosis [Unknown]
  - Vomiting [Recovered/Resolved]
  - Dizziness [Unknown]
  - Abdominal hernia infection [Unknown]
  - Hepatic neoplasm [Unknown]
  - Balance disorder [Unknown]
  - Nasopharyngitis [Unknown]
  - Peripheral swelling [Unknown]
  - Gait disturbance [Unknown]
  - Injection site pain [Unknown]
  - Haemorrhage [Unknown]
  - Dysphonia [Recovered/Resolved]
  - Musculoskeletal pain [Unknown]
  - Pain in extremity [Unknown]
  - Poor quality sleep [Recovering/Resolving]
  - Nausea [Recovering/Resolving]
  - Abdominal hernia [Unknown]
  - Viral infection [Unknown]
  - Dehydration [Unknown]

NARRATIVE: CASE EVENT DATE: 201709
